FAERS Safety Report 5169032-2 (Version None)
Quarter: 2006Q4

REPORT INFORMATION
  Report Type: 
  Country: None (occurrence: None)
  Receive Date: 20061211
  Receipt Date: 20061129
  Transmission Date: 20070319
  Serious: Yes (Disabling)
  Sender: FDA-Public Use
  Company Number: GB-GILEAD-2006-0010751

PATIENT
  Age: 31 Year
  Sex: Male
  Weight: 57 kg

DRUGS (3)
  1. VIREAD [Suspect]
     Indication: RETROVIRAL INFECTION
     Route: 048
     Dates: start: 20030701, end: 20060501
  2. EFAVIRENZ [Concomitant]
     Indication: RETROVIRAL INFECTION
     Route: 048
     Dates: start: 20030701
  3. LAMIVUDINE [Concomitant]
     Indication: RETROVIRAL INFECTION
     Route: 048
     Dates: start: 20030701

REACTIONS (5)
  - BLOOD ALKALINE PHOSPHATASE INCREASED [None]
  - BLOOD CREATININE INCREASED [None]
  - BLOOD PHOSPHORUS DECREASED [None]
  - MYOPATHY [None]
  - PAIN IN EXTREMITY [None]
